FAERS Safety Report 9502498 (Version 3)
Quarter: 2013Q4

REPORT INFORMATION
  Report Type: Report from Study
  Country: DE (occurrence: DE)
  Receive Date: 20130906
  Receipt Date: 20131008
  Transmission Date: 20140711
  Serious: Yes (Hospitalization)
  Sender: FDA-Public Use
  Company Number: DE-ROCHE-1270269

PATIENT
  Sex: Male

DRUGS (22)
  1. RITUXIMAB [Suspect]
     Indication: B-CELL LYMPHOMA
     Dosage: LAST DOSE PRIOR TO SAE: 27/AUG/2013
     Route: 042
     Dates: start: 20130813
  2. RITUXIMAB [Suspect]
     Route: 042
     Dates: start: 20130514, end: 20130514
  3. PEGFILGRASTIM [Suspect]
     Indication: B-CELL LYMPHOMA
     Route: 058
     Dates: start: 20130816
  4. DOXORUBICINE [Suspect]
     Indication: B-CELL LYMPHOMA
     Dosage: DATE OF LAST CYCLE OF DOXORUBICIN: 15/MAY/2013.
     Route: 042
     Dates: start: 20130814
  5. DOXORUBICINE [Suspect]
     Route: 042
     Dates: start: 20130515, end: 20130515
  6. VINCRISTINE [Suspect]
     Indication: B-CELL LYMPHOMA
     Dosage: DATE OF LAST CYCLE OF VINCRISTINE: 15/MAY/2013.
     Route: 042
     Dates: start: 20130814
  7. VINCRISTINE [Suspect]
     Route: 042
     Dates: start: 20130515, end: 20130515
  8. PREDNISOLONE [Suspect]
     Indication: B-CELL LYMPHOMA
     Dosage: DATE OF LAST CYCLE OF PREDNISONE: 15/MAY/2013
     Route: 048
     Dates: start: 20130808, end: 20130814
  9. CYCLOPHOSPHAMIDE [Suspect]
     Indication: B-CELL LYMPHOMA
     Dosage: DATE OF LAST CYCLE OF CYCLOPHOSPHAMIDE: 15/MAY/2013
     Route: 042
     Dates: start: 20130814
  10. CYCLOPHOSPHAMIDE [Suspect]
     Route: 042
     Dates: start: 20130515, end: 20130515
  11. METFORMIN [Concomitant]
     Indication: DIABETES MELLITUS
     Route: 048
  12. PANTOPRAZOL NATRIUM [Concomitant]
     Indication: PROPHYLAXIS
     Route: 048
     Dates: start: 20130225
  13. RAMIPRIL HCT [Concomitant]
     Indication: HYPERTENSION
     Route: 048
  14. METAMIZOLE SODIUM [Concomitant]
     Indication: PAIN
     Route: 048
     Dates: start: 20130730
  15. DALTEPARINNATRIUM [Concomitant]
     Indication: PROPHYLAXIS
     Route: 058
     Dates: start: 201307
  16. HYDROCORTISONE [Concomitant]
     Indication: ADRENAL INSUFFICIENCY
     Route: 048
     Dates: start: 20130730
  17. HYDROCORTISONE [Concomitant]
     Route: 065
     Dates: start: 20130906
  18. FLUDROCORTISON [Concomitant]
     Indication: ASTHMA
     Route: 048
  19. THEOPHYLLIN [Concomitant]
     Route: 048
  20. LEVOTHYROXIN-NATRIUM [Concomitant]
     Route: 048
     Dates: start: 20130730
  21. LEVOTHYROXINE SODIUM [Concomitant]
     Indication: HYPOTHYROIDISM
     Route: 048
     Dates: start: 20130225
  22. TRIMETHOPRIM [Concomitant]
     Route: 048
     Dates: start: 20130225

REACTIONS (3)
  - Pyrexia [Not Recovered/Not Resolved]
  - Febrile neutropenia [Recovered/Resolved]
  - Febrile infection [Recovered/Resolved]
